FAERS Safety Report 5543244-8 (Version None)
Quarter: 2007Q4

REPORT INFORMATION
  Report Type: 
  Country: None (occurrence: None)
  Receive Date: 20071206
  Receipt Date: 20071126
  Transmission Date: 20080405
  Serious: Yes (Hospitalization)
  Sender: FDA-Public Use
  Company Number: 239402K07USA

PATIENT
  Age: 58 Year
  Sex: Male
  Weight: 122.4712 kg

DRUGS (13)
  1. REBIF [Suspect]
     Indication: MULTIPLE SCLEROSIS
     Dosage: 44 MCG, 3 IN 1 WEEKS, SUBCUTANEOUS
     Route: 058
     Dates: start: 20070301
  2. OXYCONTIN [Concomitant]
  3. TOPAMAX [Concomitant]
  4. NEURONTIN [Concomitant]
  5. ZANAFLEX [Concomitant]
  6. BACLOFEN [Concomitant]
  7. CYMBALTA [Concomitant]
  8. ARICEPT [Concomitant]
  9. ZOLOFT [Concomitant]
  10. ELAVIL [Concomitant]
  11. KLONOPIN [Concomitant]
  12. LORTAB [Concomitant]
  13. TEGRETOL [Concomitant]

REACTIONS (2)
  - BLOOD PRESSURE DIASTOLIC DECREASED [None]
  - SEPSIS [None]
